FAERS Safety Report 8362203-3 (Version None)
Quarter: 2012Q2

REPORT INFORMATION
  Report Type: 
  Country: None (occurrence: None)
  Receive Date: 20120515
  Receipt Date: 20120510
  Transmission Date: 20120825
  Serious: Yes (Hospitalization, Other)
  Sender: FDA-Public Use
  Company Number: US-MERCK-1203USA01455

PATIENT
  Age: 59 Year
  Sex: Male
  Weight: 133 kg

DRUGS (16)
  1. ZOLPIDEM TARTRATE [Concomitant]
     Route: 048
  2. ACETAMINOPHEN AND HYDROCODONE BITARTRATE [Concomitant]
     Dosage: 1-2 TABLETS EVERY 4 HOURS
     Route: 048
  3. ALFUZOSIN HYDROCHLORIDE [Concomitant]
     Route: 048
  4. LOVAZA [Concomitant]
     Route: 048
  5. LIPITOR [Concomitant]
     Route: 048
  6. LANTUS [Concomitant]
     Route: 058
  7. AMOXICILLIN [Concomitant]
     Route: 048
  8. DIOVAN HCT [Concomitant]
     Indication: ESSENTIAL HYPERTENSION
     Dosage: 1 TABLET DAILY
     Route: 048
     Dates: start: 20120326
  9. ALPRAZOLAM [Concomitant]
     Route: 048
  10. ANDROGEL [Concomitant]
     Dosage: 2 PUMPS DAILY TRANSDERMAL
     Route: 065
  11. FLECTOR [Concomitant]
     Route: 065
  12. JANUVIA [Suspect]
     Indication: DIABETES MELLITUS
     Route: 048
  13. HYDROCHLOROTHIAZIDE AND LOSARTAN POTASSIUM [Concomitant]
     Route: 048
  14. SINGULAIR [Concomitant]
     Route: 048
  15. LYRICA [Concomitant]
     Route: 048
  16. NOVOLOG [Concomitant]
     Dosage: 4U AM, 16U PM
     Route: 058

REACTIONS (1)
  - THYROID CANCER [None]
